FAERS Safety Report 17974589 (Version 3)
Quarter: 2020Q3

REPORT INFORMATION
  Report Type: Spontaneous
  Country: US (occurrence: US)
  Receive Date: 20200702
  Receipt Date: 20200921
  Transmission Date: 20201103
  Serious: No
  Sender: FDA-Public Use
  Company Number: US-PFIZER INC-2020254734

PATIENT
  Age: 58 Year
  Sex: Male

DRUGS (2)
  1. INLYTA [Suspect]
     Active Substance: AXITINIB
     Dosage: UNK
     Dates: start: 20200428
  2. INLYTA [Suspect]
     Active Substance: AXITINIB
     Dosage: UNK
     Dates: start: 20200305

REACTIONS (8)
  - Gait disturbance [Recovering/Resolving]
  - Palmar-plantar erythrodysaesthesia syndrome [Recovering/Resolving]
  - Fatigue [Unknown]
  - Arthralgia [Unknown]
  - Rash [Unknown]
  - Pruritus [Unknown]
  - Cough [Unknown]
  - Pain in extremity [Not Recovered/Not Resolved]
